FAERS Safety Report 20264397 (Version 2)
Quarter: 2022Q1

REPORT INFORMATION
  Report Type: Spontaneous
  Country: CA (occurrence: CA)
  Receive Date: 20211231
  Receipt Date: 20220110
  Transmission Date: 20220423
  Serious: Yes (Other)
  Sender: FDA-Public Use
  Company Number: CA-BAUSCH-BL-2021-042113

PATIENT

DRUGS (9)
  1. CONTRAVE [Suspect]
     Active Substance: BUPROPION HYDROCHLORIDE\NALTREXONE HYDROCHLORIDE
     Indication: Weight control
     Dosage: 8MG/90MG (1 DOSAGE FORMS,1 IN 1 D)
     Route: 048
  2. CONTRAVE [Suspect]
     Active Substance: BUPROPION HYDROCHLORIDE\NALTREXONE HYDROCHLORIDE
     Dosage: 8MG/90MG (1 DOSAGE FORMS,1 IN 12 HR)
     Route: 048
  3. CONTRAVE [Suspect]
     Active Substance: BUPROPION HYDROCHLORIDE\NALTREXONE HYDROCHLORIDE
     Dosage: 8MG/90MG (1 IN 12 HR)
     Route: 048
     Dates: end: 20211205
  4. CONTRAVE [Suspect]
     Active Substance: BUPROPION HYDROCHLORIDE\NALTREXONE HYDROCHLORIDE
     Dosage: 8MG/90MG (2 DOSAGE FORMS,1 IN 12 HR)
     Route: 048
     Dates: start: 20211206, end: 202112
  5. CONTRAVE [Suspect]
     Active Substance: BUPROPION HYDROCHLORIDE\NALTREXONE HYDROCHLORIDE
     Dosage: 8MG/90MG, 3 PILLS A DAY (1 IN 12 HR)
     Route: 048
     Dates: start: 202112
  6. VITAMIN D                          /00318501/ [Concomitant]
     Indication: Product used for unknown indication
     Dosage: UNK
     Route: 048
  7. CELECOXIB [Concomitant]
     Active Substance: CELECOXIB
     Indication: Product used for unknown indication
     Dosage: 100MH
     Route: 048
  8. CYCLOBENZAPRINE [Concomitant]
     Active Substance: CYCLOBENZAPRINE
     Indication: Product used for unknown indication
     Dosage: 10 MG
     Route: 048
  9. XENICAL [Concomitant]
     Active Substance: ORLISTAT
     Indication: Product used for unknown indication
     Dosage: 120 MG
     Route: 048
     Dates: start: 202110

REACTIONS (2)
  - Morbid thoughts [Recovered/Resolved]
  - Nightmare [Recovered/Resolved]

NARRATIVE: CASE EVENT DATE: 20211201
